FAERS Safety Report 11629886 (Version 2)
Quarter: 2015Q4

REPORT INFORMATION
  Report Type: Spontaneous
  Country: ES (occurrence: ES)
  Receive Date: 20151014
  Receipt Date: 20151020
  Transmission Date: 20160304
  Serious: Yes (Other)
  Sender: FDA-Public Use
  Company Number: ES-ALK-ABELL?? A/S-1042966

PATIENT
  Age: 5 Year
  Sex: Male
  Weight: 22.6 kg

DRUGS (1)
  1. HONEY BEE VENOM [Suspect]
     Active Substance: APIS MELLIFERA VENOM
     Indication: ANAPHYLACTIC REACTION
     Route: 058
     Dates: start: 20150924

REACTIONS (7)
  - Eyelid oedema [Recovered/Resolved]
  - Lip oedema [Recovered/Resolved]
  - Rhinitis [Recovered/Resolved]
  - Oxygen saturation decreased [Recovered/Resolved]
  - Conjunctivitis [Recovered/Resolved]
  - Urticaria [Recovered/Resolved]
  - Cough [Recovered/Resolved]

NARRATIVE: CASE EVENT DATE: 20150924
